FAERS Safety Report 21984832 (Version 6)
Quarter: 2023Q2

REPORT INFORMATION
  Report Type: Spontaneous
  Country: CO (occurrence: CO)
  Receive Date: 20230213
  Receipt Date: 20230405
  Transmission Date: 20230722
  Serious: No
  Sender: FDA-Public Use
  Company Number: CO-PFIZER INC-PV202300024575

PATIENT
  Age: 21 Month
  Sex: Female

DRUGS (3)
  1. GENOTROPIN [Suspect]
     Active Substance: SOMATROPIN
     Indication: Hypoglycaemia
     Dosage: 0.2 AND 0.3 MG INTERCALATED
     Route: 058
  2. GENOTROPIN [Suspect]
     Active Substance: SOMATROPIN
     Indication: Hypothyroidism
     Dosage: 0.3 MG, DAILY
     Route: 058
     Dates: start: 20230206
  3. GENOTROPIN [Suspect]
     Active Substance: SOMATROPIN
     Indication: Growth hormone deficiency

REACTIONS (4)
  - Device breakage [Unknown]
  - Device leakage [Unknown]
  - Poor quality device used [Unknown]
  - Drug dose omission by device [Unknown]

NARRATIVE: CASE EVENT DATE: 20230206
